FAERS Safety Report 9678995 (Version 1)
Quarter: 2013Q4

REPORT INFORMATION
  Report Type: Spontaneous
  Country: US (occurrence: None)
  Receive Date: 20131107
  Receipt Date: 20131107
  Transmission Date: 20140711
  Serious: Yes (Other)
  Sender: FDA-Public Use
  Company Number: DSU-2013-05019

PATIENT
  Age: 59 Year
  Sex: Female
  Weight: 58.97 kg

DRUGS (2)
  1. WELCHOL [Suspect]
     Indication: HYPERLIPIDAEMIA
     Dosage: 3.75 GM, QD, PER ORAL
     Route: 048
     Dates: start: 20131023, end: 20131023
  2. WELCHOL (COLESEVELAM HYDROCHLORIDE) (625 MILLIGRAM, TABLET) (COLESEVELAM HYDROCHLORIDE) [Suspect]
     Indication: HYPERLIPIDAEMIA
     Dosage: 3750 MG (1875 MG, BID)
     Route: 048
     Dates: start: 20131023, end: 20131023

REACTIONS (10)
  - Product taste abnormal [None]
  - Product physical issue [None]
  - Malaise [None]
  - Insomnia [None]
  - Ocular hyperaemia [None]
  - Feeling hot [None]
  - Hypoaesthesia [None]
  - Hyperhidrosis [None]
  - Presyncope [None]
  - Hypersensitivity [None]
